FAERS Safety Report 4889645-2 (Version None)
Quarter: 2006Q1

REPORT INFORMATION
  Report Type: 
  Country: None (occurrence: None)
  Receive Date: 20060124
  Receipt Date: 20060119
  Transmission Date: 20060701
  Serious: Yes (Other)
  Sender: FDA-Public Use
  Company Number: FR-GLAXOSMITHKLINE-B0407350A

PATIENT
  Sex: Male

DRUGS (1)
  1. SERETIDE DISKUS [Suspect]
     Route: 055

REACTIONS (1)
  - DEEP VEIN THROMBOSIS [None]
